FAERS Safety Report 5753170-7 (Version None)
Quarter: 2008Q2

REPORT INFORMATION
  Report Type: 
  Country: None (occurrence: None)
  Receive Date: 20080527
  Receipt Date: 20080509
  Transmission Date: 20081010
  Serious: Yes (Life-Threatening, Hospitalization)
  Sender: FDA-Public Use
  Company Number: ENTC2008-0143

PATIENT
  Age: 71 Year
  Sex: Female

DRUGS (11)
  1. STALEVO 100 [Suspect]
     Indication: PARKINSON'S DISEASE
     Dosage: 150/37, 5/200 MG ORAL
     Route: 048
     Dates: end: 20080418
  2. DEPAKOTE [Suspect]
     Indication: BIPOLAR I DISORDER
     Dosage: 1000 MG (500 MG, 2 IN 1 D) ORAL
     Route: 048
     Dates: start: 20080410, end: 20080418
  3. OXAZEPAM [Suspect]
     Indication: DRUG DEPENDENCE
     Dosage: 50 MG ORAL
     Route: 048
     Dates: start: 20080418, end: 20080418
  4. MODOPAR [Suspect]
     Indication: PARKINSON'S DISEASE
     Dosage: 150/600 MG ORAL
     Route: 048
     Dates: end: 20080418
  5. GARDENAL [Suspect]
     Indication: EPILEPSY
     Dosage: 100 MG (100 MG, 1 IN 1 D) ORAL
     Route: 048
  6. TERALITHE [Suspect]
     Dosage: 250 MG (250 MG, 1 IN 1 D) ORAL
     Route: 048
     Dates: end: 20080331
  7. LEVOTHYROXINE SODIUM [Concomitant]
  8. PAROXETINE HCL [Concomitant]
  9. HALDOL [Concomitant]
  10. FRAXIPARINE [Concomitant]
  11. ANEXATE [Concomitant]

REACTIONS (20)
  - BLOOD LACTIC ACID DECREASED [None]
  - BLOOD SODIUM INCREASED [None]
  - CENTRAL-ALVEOLAR HYPOVENTILATION [None]
  - COMA [None]
  - CONFUSIONAL STATE [None]
  - DEHYDRATION [None]
  - DRUG DEPENDENCE [None]
  - DRUG LEVEL ABOVE THERAPEUTIC [None]
  - EXTRAPYRAMIDAL DISORDER [None]
  - HALLUCINATION, VISUAL [None]
  - HYPERCAPNIA [None]
  - HYPOALBUMINAEMIA [None]
  - HYPOXIA [None]
  - MUSCLE RIGIDITY [None]
  - MUTISM [None]
  - NEPHROGENIC DIABETES INSIPIDUS [None]
  - PNEUMONIA ASPIRATION [None]
  - PYREXIA [None]
  - RENAL FAILURE [None]
  - TREMOR [None]
